FAERS Safety Report 9797077 (Version 1)
Quarter: 2014Q1

REPORT INFORMATION
  Report Type: Spontaneous
  Country: ES (occurrence: ES)
  Receive Date: 20140105
  Receipt Date: 20140105
  Transmission Date: 20141002
  Serious: Yes (Hospitalization)
  Sender: FDA-Public Use
  Company Number: ES-MYLANLABS-2013S1029070

PATIENT
  Age: 87 Year
  Sex: Female

DRUGS (7)
  1. PHENYTOIN [Suspect]
     Indication: EPILEPSY
     Route: 065
  2. ACENOCOUMAROL [Interacting]
     Route: 065
  3. METFORMIN W/SITAGLIPTIN [Concomitant]
     Route: 065
  4. DILTIAZEM [Concomitant]
     Route: 065
  5. TORASEMIDE [Concomitant]
     Route: 065
  6. RAMIPRIL [Concomitant]
     Route: 065
  7. HALOPERIDOL [Concomitant]
     Route: 065

REACTIONS (9)
  - Drug interaction [Recovering/Resolving]
  - International normalised ratio increased [Recovered/Resolved]
  - Toxicity to various agents [Recovering/Resolving]
  - Ataxia [Recovering/Resolving]
  - Dizziness [Recovering/Resolving]
  - Lethargy [Recovering/Resolving]
  - Dysarthria [Recovering/Resolving]
  - Disorientation [Recovering/Resolving]
  - Decreased appetite [Recovering/Resolving]
